FAERS Safety Report 24215744 (Version 1)
Quarter: 2024Q3

REPORT INFORMATION
  Report Type: Spontaneous
  Country: US (occurrence: US)
  Receive Date: 20240816
  Receipt Date: 20240816
  Transmission Date: 20241017
  Serious: No
  Sender: MERCK
  Company Number: US-009507513-2408USA003871

PATIENT
  Age: 55 Year
  Sex: Female
  Weight: 97.5 kg

DRUGS (14)
  1. WINREVAIR [Suspect]
     Active Substance: SOTATERCEPT-CSRK
     Indication: Product used for unknown indication
     Dosage: UNK
     Dates: start: 2024
  2. WINREVAIR [Suspect]
     Active Substance: SOTATERCEPT-CSRK
     Dosage: DOSE DECREASED
     Dates: start: 20240801
  3. TYVASO DPI [Suspect]
     Active Substance: TREPROSTINIL
     Indication: Pulmonary arterial hypertension
     Dosage: 80 MICROGRAM (32 MICROGRAM + 48 MICROGRAM), QID
     Dates: start: 2024
  4. TYVASO DPI [Suspect]
     Active Substance: TREPROSTINIL
     Dosage: 80 MICROGRAM (32 MICROGRAM + 48 MICROGRAM), QID
     Dates: start: 20240515
  5. WEGOVY [Concomitant]
     Active Substance: SEMAGLUTIDE
  6. OPSUMIT [Concomitant]
     Active Substance: MACITENTAN
  7. PANTOPRAZOLE SODIUM [Concomitant]
     Active Substance: PANTOPRAZOLE SODIUM
  8. VITAMIN D2 [Concomitant]
     Active Substance: ERGOCALCIFEROL
  9. NITROGLYCERIN [Concomitant]
     Active Substance: NITROGLYCERIN
  10. POLYETHYLENE GLYCOLS [Concomitant]
     Active Substance: POLYETHYLENE GLYCOLS
  11. OXYGEN [Concomitant]
     Active Substance: OXYGEN
  12. DIGOXIN [Concomitant]
     Active Substance: DIGOXIN
  13. HYDROXYZINE HYDROCHLORIDE [Concomitant]
     Active Substance: HYDROXYZINE HYDROCHLORIDE
  14. LOSARTAN POTASSIUM [Concomitant]
     Active Substance: LOSARTAN POTASSIUM

REACTIONS (1)
  - Haemoglobin abnormal [Unknown]

NARRATIVE: CASE EVENT DATE: 20240801
